FAERS Safety Report 25607768 (Version 4)
Quarter: 2025Q4

REPORT INFORMATION
  Report Type: Report from Study
  Country: GB (occurrence: GB)
  Receive Date: 20250725
  Receipt Date: 20251104
  Transmission Date: 20260119
  Serious: Yes (Other)
  Sender: NOVARTIS
  Company Number: GB-002147023-NVSC2025GB117239

PATIENT
  Sex: Male

DRUGS (1)
  1. COSENTYX [Suspect]
     Active Substance: SECUKINUMAB
     Indication: Ankylosing spondylitis
     Dosage: 150 MG, QMO
     Route: 058

REACTIONS (12)
  - Myocardial infarction [Unknown]
  - Urticaria [Unknown]
  - Hypersensitivity [Unknown]
  - Pruritus [Unknown]
  - Feeling of body temperature change [Unknown]
  - Irritable bowel syndrome [Unknown]
  - Injection site mass [Unknown]
  - Injection site haemorrhage [Unknown]
  - Abdominal discomfort [Unknown]
  - Abdominal distension [Unknown]
  - Heart rate increased [Unknown]
  - Panic attack [Unknown]
